FAERS Safety Report 17195069 (Version 3)
Quarter: 2020Q2

REPORT INFORMATION
  Report Type: Report from Study
  Country: US (occurrence: US)
  Receive Date: 20191224
  Receipt Date: 20200405
  Transmission Date: 20200713
  Serious: No
  Sender: FDA-Public Use
  Company Number: NVSC2019US076540

PATIENT
  Age: 73 Year
  Sex: Female

DRUGS (1)
  1. BEOVU [Suspect]
     Active Substance: BROLUCIZUMAB-DBLL
     Indication: NEOVASCULAR AGE-RELATED MACULAR DEGENERATION
     Dosage: 6 MG, ONE SINGLE DOSE
     Route: 047
     Dates: start: 20191216

REACTIONS (5)
  - Visual impairment [Unknown]
  - Vision blurred [Unknown]
  - Lacrimation increased [Unknown]
  - Eye disorder [Unknown]
  - Eye pain [Unknown]

NARRATIVE: CASE EVENT DATE: 20191216
